FAERS Safety Report 24553319 (Version 1)
Quarter: 2024Q4

REPORT INFORMATION
  Report Type: Report from Study
  Country: JP (occurrence: JP)
  Receive Date: 20241028
  Receipt Date: 20241028
  Transmission Date: 20250115
  Serious: Yes (Hospitalization)
  Sender: SHIONOGI
  Company Number: JP-shionogi-202400001447

PATIENT
  Age: 59 Year
  Sex: Male
  Weight: 60 kg

DRUGS (14)
  1. CEFIDEROCOL [Suspect]
     Active Substance: CEFIDEROCOL
     Indication: Febrile neutropenia
     Route: 041
     Dates: start: 20240506, end: 20240507
  2. CEFIDEROCOL [Suspect]
     Active Substance: CEFIDEROCOL
     Route: 041
     Dates: start: 20240524, end: 20240719
  3. DORIPENEM MONOHYDRATE [Suspect]
     Active Substance: DORIPENEM MONOHYDRATE
     Indication: Febrile neutropenia
     Route: 065
     Dates: start: 20240510, end: 20240524
  4. ACYCLOVIR [Concomitant]
     Active Substance: ACYCLOVIR
     Indication: Product used for unknown indication
     Route: 065
     Dates: start: 20240317
  5. PREVYMIS [Concomitant]
     Active Substance: LETERMOVIR
     Indication: Prophylaxis
     Route: 065
     Dates: start: 20240509, end: 20240531
  6. CRESEMBA [Concomitant]
     Active Substance: ISAVUCONAZONIUM SULFATE
     Indication: Febrile neutropenia
     Route: 065
     Dates: start: 20240518, end: 20240526
  7. TEICOPLANIN [Concomitant]
     Active Substance: TEICOPLANIN
     Indication: Febrile neutropenia
     Route: 065
     Dates: start: 20240507, end: 20240716
  8. VFEND [Concomitant]
     Active Substance: VORICONAZOLE
     Indication: Febrile neutropenia
     Route: 065
     Dates: start: 20240513, end: 20240518
  9. NOXAFIL [Concomitant]
     Active Substance: POSACONAZOLE
     Indication: Febrile neutropenia
     Route: 048
     Dates: start: 20240315, end: 20240513
  10. AMBISOME [Concomitant]
     Active Substance: AMPHOTERICIN B
     Indication: Febrile neutropenia
     Route: 065
     Dates: start: 20240526
  11. FOSCAVIR [Concomitant]
     Active Substance: FOSCARNET SODIUM
     Indication: Product used for unknown indication
     Route: 041
     Dates: start: 20240531, end: 20240625
  12. FOSCAVIR [Concomitant]
     Active Substance: FOSCARNET SODIUM
     Indication: Human herpesvirus 6 encephalitis
  13. FUROSEMIDE [Concomitant]
     Active Substance: FUROSEMIDE
     Indication: Pleural effusion
     Route: 065
  14. CARPERITIDE [Concomitant]
     Active Substance: CARPERITIDE
     Indication: Pleural effusion
     Route: 042

REACTIONS (4)
  - Lung opacity [Recovering/Resolving]
  - Pleural effusion [Recovering/Resolving]
  - Human herpesvirus 6 encephalitis [Recovered/Resolved]
  - Osteomyelitis [Not Recovered/Not Resolved]

NARRATIVE: CASE EVENT DATE: 20240520
